FAERS Safety Report 24718778 (Version 1)
Quarter: 2024Q4

REPORT INFORMATION
  Report Type: Report from Study
  Country: US (occurrence: US)
  Receive Date: 20241210
  Receipt Date: 20241210
  Transmission Date: 20250115
  Serious: No
  Sender: INCYTE
  Company Number: US-EVENT-000620

PATIENT

DRUGS (4)
  1. JAKAFI [Suspect]
     Active Substance: RUXOLITINIB
     Indication: Myelofibrosis
     Dosage: 20 MILLIGRAM, BID
     Route: 065
  2. JAKAFI [Suspect]
     Active Substance: RUXOLITINIB
     Dosage: 10 MILLIGRAM, BID (HALF A TABLET OF 20MILLIGRAM)
     Route: 065
  3. JAKAFI [Suspect]
     Active Substance: RUXOLITINIB
     Dosage: 5 MILLIGRAM, BID, (HALF A TABLET OF 10MILLIGRAM; 5 MG IN THE MORNING AND 5 MG IN THE EVENING)
     Route: 065
  4. HYDROXYUREA [Concomitant]
     Active Substance: HYDROXYUREA
     Indication: Product used for unknown indication
     Dosage: UNK
     Route: 065

REACTIONS (2)
  - Wrong technique in product usage process [Unknown]
  - Anaemia [Unknown]
